FAERS Safety Report 8783538 (Version 1)
Quarter: 2012Q4

REPORT INFORMATION
  Report Type: 
  Country: US (occurrence: US)
  Receive Date: 20120913
  Receipt Date: 20120913
  Transmission Date: 20130627
  Serious: No
  Sender: FDA-Public Use
  Company Number: US-VERTEX PHARMACEUTICAL INC.-AE-2012-008939

PATIENT
  Age: 60 None
  Sex: Female
  Weight: 67.73 kg

DRUGS (5)
  1. INCIVEK [Suspect]
     Indication: HEPATITIS C
     Route: 048
     Dates: start: 20120602
  2. RIBAVIRIN [Concomitant]
     Indication: HEPATITIS C
     Route: 048
     Dates: start: 20120602
  3. PEGASYS [Concomitant]
     Indication: HEPATITIS C
     Route: 058
     Dates: start: 20120602
  4. LEXAPRO [Concomitant]
     Indication: DEPRESSION
     Route: 048
     Dates: start: 20120614
  5. AMBIEN [Concomitant]
     Route: 048
     Dates: start: 20120614

REACTIONS (6)
  - Ageusia [Not Recovered/Not Resolved]
  - Headache [Not Recovered/Not Resolved]
  - Decreased appetite [Not Recovered/Not Resolved]
  - Anal pruritus [Not Recovered/Not Resolved]
  - Anorectal discomfort [Not Recovered/Not Resolved]
  - Diarrhoea [Recovered/Resolved]
